FAERS Safety Report 6572280-8 (Version None)
Quarter: 2010Q1

REPORT INFORMATION
  Report Type: 
  Country: None (occurrence: None)
  Receive Date: 20100205
  Receipt Date: 20100202
  Transmission Date: 20100710
  Serious: Yes (Death)
  Sender: FDA-Public Use
  Company Number: PHEH2009US14254

PATIENT
  Age: 91 Year
  Sex: Female
  Weight: 49 kg

DRUGS (20)
  1. GLEEVEC [Suspect]
     Indication: GASTROINTESTINAL STROMAL TUMOUR
     Dosage: 300 MG/DAY
     Route: 048
     Dates: start: 20080923, end: 20090401
  2. GLEEVEC [Suspect]
     Dosage: 100 MG, BID
     Route: 048
     Dates: start: 20090801, end: 20091201
  3. ASPIRIN [Concomitant]
     Dosage: 81MG, DAILY
  4. NOVOLOG [Concomitant]
  5. AMBIEN [Concomitant]
  6. TRIMETHOPRIM [Concomitant]
  7. FUROSEMIDE [Concomitant]
  8. NEURONTIN [Concomitant]
     Dosage: 100 MG
     Route: 048
  9. CRESTOR [Concomitant]
  10. LOPRESSOR [Concomitant]
  11. ALTACE [Concomitant]
  12. PROMETHAZINE [Concomitant]
     Indication: NAUSEA
     Dosage: 12.5 UG, PRN
     Route: 048
  13. RAMIPRIL [Concomitant]
     Indication: HYPOTENSION
     Dosage: 5 MG, DAILY
     Route: 048
  14. METOPROLOL TARTRATE [Concomitant]
     Dosage: 12.5 MG, BID
  15. GABAPENTIN [Concomitant]
     Dosage: 100 MG, QD
     Route: 048
  16. NOVOLIN [Concomitant]
     Dosage: 10 UNITS DAILY
  17. ROSUVASTATIN [Concomitant]
     Dosage: 5 MG/DAY
     Route: 048
  18. ZOLPIDEM [Concomitant]
     Dosage: 5 MG/DAY
  19. SYNTHROID [Concomitant]
     Indication: DIARRHOEA
     Dosage: 75 MCG DAILY
     Route: 048
  20. LORTAB [Concomitant]
     Dosage: 7.5 MG, PRN

REACTIONS (1)
  - DEATH [None]
